FAERS Safety Report 10175872 (Version 1)
Quarter: 2014Q2

REPORT INFORMATION
  Report Type: Spontaneous
  Country: IT (occurrence: IT)
  Receive Date: 20140516
  Receipt Date: 20140516
  Transmission Date: 20141212
  Serious: Yes (Hospitalization)
  Sender: FDA-Public Use
  Company Number: IT-ASTRAZENECA-2014SE31702

PATIENT
  Age: 12759 Day
  Sex: Male

DRUGS (4)
  1. SEROQUEL [Suspect]
     Dosage: 5 IU/25 MG FILM COATED TABLETS
     Route: 048
     Dates: start: 20140416, end: 20140416
  2. LEXOTAN [Suspect]
     Dosage: 2.5 MG /ML ORAL DROPS, SOLUTION
     Route: 048
     Dates: start: 20140416, end: 20140416
  3. SERTRALINE [Suspect]
     Route: 048
     Dates: start: 20140416, end: 20140416
  4. DEPAKIN [Suspect]
     Dosage: 5 IU/500 MG PROLONGED RELEASED TABLETS
     Route: 048
     Dates: start: 20140416, end: 20140416

REACTIONS (7)
  - Intentional self-injury [Recovering/Resolving]
  - Rhabdomyolysis [Recovering/Resolving]
  - Drug abuse [Unknown]
  - Bradyphrenia [Recovering/Resolving]
  - Sopor [Recovering/Resolving]
  - Bradykinesia [Recovering/Resolving]
  - Hypotension [Recovering/Resolving]
